FAERS Safety Report 4788190-2 (Version None)
Quarter: 2005Q3

REPORT INFORMATION
  Report Type: 
  Country: None (occurrence: None)
  Receive Date: 20050920
  Receipt Date: 20050401
  Transmission Date: 20060218
  Serious: Yes (Other)
  Sender: FDA-Public Use
  Company Number: PHEH2005US01370

PATIENT
  Age: 62 Year
  Sex: Male

DRUGS (7)
  1. DIOVAN [Suspect]
     Indication: CORONARY ARTERY SURGERY
     Dosage: 80 MG, QD, ORAL
     Route: 048
     Dates: start: 20030201
  2. NIASPAN [Concomitant]
  3. ZOCOR [Concomitant]
  4. TRICOR [Concomitant]
  5. LABETALOL HCL [Concomitant]
  6. CARDIAC STIMULANTS (NO INGREDIENTS/SUBSTANCES) [Concomitant]
  7. FOLIC ACID [Concomitant]

REACTIONS (9)
  - BLOOD ALBUMIN INCREASED [None]
  - BLOOD CREATININE INCREASED [None]
  - BLOOD POTASSIUM INCREASED [None]
  - BLOOD UREA INCREASED [None]
  - HAEMATOCRIT DECREASED [None]
  - HAEMOGLOBIN DECREASED [None]
  - MEAN PLATELET VOLUME DECREASED [None]
  - PCO2 DECREASED [None]
  - RED BLOOD CELL COUNT DECREASED [None]
